FAERS Safety Report 24737836 (Version 1)
Quarter: 2024Q4

REPORT INFORMATION
  Report Type: Spontaneous
  Country: US (occurrence: US)
  Receive Date: 20241216
  Receipt Date: 20241216
  Transmission Date: 20250115
  Serious: No
  Sender: ALVOGEN
  Company Number: US-ALVOGEN-2024093276

PATIENT

DRUGS (2)
  1. FENTANYL [Suspect]
     Active Substance: FENTANYL
     Indication: Inflammatory pain
     Dosage: FENTANYL 75 MCG PATCHES EVERY 48 HRS?EXPIRATION DATE: UU-DEC-2026?MANUFACTURING DATE: 04-DEC-2023
  2. FENTANYL [Suspect]
     Active Substance: FENTANYL
     Indication: Inflammatory pain
     Dosage: FENTANYL 75 MCG PATCHES EVERY 48 HRS?MANUFACTURING DATE: 14-AUG-2023?EXPIRATION DATE: UU-AUG-2026

REACTIONS (7)
  - Device adhesion issue [Unknown]
  - Device malfunction [Unknown]
  - Product quality issue [Unknown]
  - Drug ineffective [Unknown]
  - Device physical property issue [Unknown]
  - Wrong technique in device usage process [Unknown]
  - Device defective [Unknown]
